FAERS Safety Report 9462027 (Version 1)
Quarter: 2013Q3

REPORT INFORMATION
  Report Type: Spontaneous
  Country: US (occurrence: None)
  Receive Date: 20130815
  Receipt Date: 20130815
  Transmission Date: 20140515
  Serious: Yes (Hospitalization)
  Sender: FDA-Public Use
  Company Number: None

PATIENT
  Age: 28 Year
  Sex: Male
  Weight: 61.4 kg

DRUGS (3)
  1. INSULIN PUMP [Suspect]
     Indication: DIABETES MELLITUS
     Dosage: CHRONIC
  2. CITALOPRAM [Concomitant]
  3. VALSARTAN [Concomitant]

REACTIONS (5)
  - Hypoglycaemia [None]
  - Convulsion [None]
  - Fall [None]
  - Thoracic vertebral fracture [None]
  - Syncope [None]
